FAERS Safety Report 16134341 (Version 2)
Quarter: 2019Q2

REPORT INFORMATION
  Report Type: Spontaneous
  Country: CN (occurrence: CN)
  Receive Date: 20190329
  Receipt Date: 20190402
  Transmission Date: 20190711
  Serious: Yes (Other)
  Sender: FDA-Public Use
  Company Number: CN-ROCHE-2290695

PATIENT
  Age: 37 Year
  Sex: Female

DRUGS (16)
  1. PROCARBAZINE [Concomitant]
     Active Substance: PROCARBAZINE
     Indication: BREAST CANCER
     Route: 065
     Dates: start: 20181019
  2. XELODA [Suspect]
     Active Substance: CAPECITABINE
     Indication: BREAST CANCER
     Dosage: 2 CYCLES
     Route: 065
     Dates: start: 20181112
  3. EPIRUBICIN [Concomitant]
     Active Substance: EPIRUBICIN
     Indication: BREAST CANCER
     Route: 065
     Dates: start: 20180712
  4. INDOMETACIN [Concomitant]
     Active Substance: INDOMETHACIN
  5. EPIRUBICIN [Concomitant]
     Active Substance: EPIRUBICIN
     Dosage: 1 CYCLE
     Route: 065
     Dates: start: 20180929
  6. CYCLOPHOSPHAMIDE. [Concomitant]
     Active Substance: CYCLOPHOSPHAMIDE
     Indication: BREAST CANCER
     Route: 065
     Dates: start: 20180712
  7. EPIRUBICIN [Concomitant]
     Active Substance: EPIRUBICIN
     Dosage: 3 CYCLES
     Route: 065
     Dates: start: 20180803
  8. CYCLOPHOSPHAMIDE. [Concomitant]
     Active Substance: CYCLOPHOSPHAMIDE
     Dosage: 3 CYCLES
     Route: 065
     Dates: start: 20180803
  9. GEMCITABINE [Concomitant]
     Active Substance: GEMCITABINE\GEMCITABINE HYDROCHLORIDE
     Indication: BREAST CANCER
     Dosage: 2 CYCLES
     Route: 065
     Dates: start: 201812, end: 20190111
  10. CYCLOPHOSPHAMIDE. [Concomitant]
     Active Substance: CYCLOPHOSPHAMIDE
     Dosage: 1 CYCLE
     Route: 065
     Dates: start: 20180929
  11. APATINIB [Concomitant]
     Active Substance: APATINIB
     Indication: BREAST CANCER
     Dosage: DF=TABLETS
     Route: 065
     Dates: start: 20190112
  12. AVASTIN [Suspect]
     Active Substance: BEVACIZUMAB
     Indication: BREAST CANCER
     Dosage: 2 CYCLES
     Route: 065
     Dates: start: 20181112
  13. TRAMADOL HYDROCHLORIDE. [Concomitant]
     Active Substance: TRAMADOL HYDROCHLORIDE
  14. VALSARTAN. [Concomitant]
     Active Substance: VALSARTAN
  15. PACLITAXEL ALBUMIN [Concomitant]
     Active Substance: PACLITAXEL
     Indication: BREAST CANCER
     Dosage: 3 WEEKS
     Route: 065
     Dates: end: 20180612
  16. DEXAMETHASONE. [Concomitant]
     Active Substance: DEXAMETHASONE
     Indication: BREAST CANCER
     Dosage: 2 CYCLES
     Route: 065
     Dates: start: 201812, end: 20190111

REACTIONS (1)
  - Neoplasm progression [Not Recovered/Not Resolved]

NARRATIVE: CASE EVENT DATE: 20181112
